FAERS Safety Report 10031358 (Version 3)
Quarter: 2014Q2

REPORT INFORMATION
  Report Type: Report from Study
  Country: US (occurrence: US)
  Receive Date: 20140324
  Receipt Date: 20140625
  Transmission Date: 20141212
  Serious: Yes (Hospitalization)
  Sender: FDA-Public Use
  Company Number: US-CELGENEUS-163-21880-14031913

PATIENT
  Age: 55 Year
  Sex: Female
  Weight: 39.95 kg

DRUGS (5)
  1. REVLIMID [Suspect]
     Indication: PLASMA CELL MYELOMA
     Dosage: 25 MILLIGRAM
     Route: 048
     Dates: start: 20131029, end: 20140214
  2. VELCADE [Suspect]
     Indication: PLASMA CELL MYELOMA
     Dosage: 1.3 MILLIGRAM/SQ. METER
     Route: 058
     Dates: start: 20131029, end: 20140214
  3. DEXAMETHASONE [Suspect]
     Indication: STEM CELL TRANSPLANT
     Dosage: 40 MILLIGRAM
     Route: 048
     Dates: start: 20131029, end: 20140214
  4. ZOFRAN [Concomitant]
     Indication: PRODUCT USED FOR UNKNOWN INDICATION
     Route: 041
     Dates: start: 20140214
  5. FLAGYL [Concomitant]
     Indication: CLOSTRIDIUM DIFFICILE INFECTION
     Route: 065
     Dates: start: 2014

REACTIONS (2)
  - Dehydration [Recovered/Resolved]
  - Mucosal inflammation [Recovered/Resolved]
